FAERS Safety Report 14392036 (Version 1)
Quarter: 2018Q1

REPORT INFORMATION
  Report Type: Spontaneous
  Country: US (occurrence: US)
  Receive Date: 20180116
  Receipt Date: 20180116
  Transmission Date: 20180509
  Serious: No
  Sender: FDA-Public Use
  Company Number: US-GLAXOSMITHKLINE-US2018GSK004764

PATIENT
  Sex: Female

DRUGS (2)
  1. SORIATANE [Suspect]
     Active Substance: ACITRETIN
     Indication: PUSTULAR PSORIASIS
     Dosage: 25 MG, UNK
     Route: 048
     Dates: start: 201710
  2. HUMIRA [Suspect]
     Active Substance: ADALIMUMAB

REACTIONS (5)
  - Psoriasis [Not Recovered/Not Resolved]
  - Lip dry [Unknown]
  - Urinary tract infection [Unknown]
  - Drug dose omission [Unknown]
  - Blister [Not Recovered/Not Resolved]
